FAERS Safety Report 8523188 (Version 7)
Quarter: 2013Q4

REPORT INFORMATION
  Report Type: Spontaneous
  Country: US (occurrence: US)
  Receive Date: 20120420
  Receipt Date: 20131204
  Transmission Date: 20140711
  Serious: Yes (Hospitalization)
  Sender: FDA-Public Use
  Company Number: US-BIOGENIDEC-2012BI013057

PATIENT
  Age: 48 Year
  Sex: Female

DRUGS (1)
  1. TYSABRI [Suspect]
     Indication: MULTIPLE SCLEROSIS
     Route: 042
     Dates: start: 20111229, end: 20120413

REACTIONS (10)
  - Muscular weakness [Recovered/Resolved]
  - Asthenia [Recovered/Resolved]
  - Gait disturbance [Recovered/Resolved]
  - Musculoskeletal disorder [Recovered/Resolved]
  - Multiple sclerosis relapse [Recovered/Resolved]
  - Central nervous system lesion [Unknown]
  - Migraine [Not Recovered/Not Resolved]
  - Vomiting [Unknown]
  - Coordination abnormal [Not Recovered/Not Resolved]
  - Urinary tract infection [Recovered/Resolved]
